FAERS Safety Report 24870982 (Version 2)
Quarter: 2025Q1

REPORT INFORMATION
  Report Type: Spontaneous
  Country: US (occurrence: US)
  Receive Date: 20250121
  Receipt Date: 20250312
  Transmission Date: 20250408
  Serious: No
  Sender: SANOFI AVENTIS
  Company Number: US-SA-2025SA018282

PATIENT
  Age: 41 Year
  Sex: Female

DRUGS (6)
  1. FABRAZYME [Suspect]
     Active Substance: AGALSIDASE BETA
     Indication: Fabry^s disease
     Dosage: 95 MG, QOW
     Route: 042
     Dates: start: 20231220
  2. FABRAZYME [Suspect]
     Active Substance: AGALSIDASE BETA
     Dosage: 95 MG, QOW
     Route: 042
  3. STERILE WATER [Concomitant]
     Active Substance: WATER
  4. SODIUM CHLORIDE [Concomitant]
     Active Substance: SODIUM CHLORIDE
  5. SODIUM CHLORIDE [Concomitant]
     Active Substance: SODIUM CHLORIDE
  6. AMLODIPINE [Concomitant]
     Active Substance: AMLODIPINE BESYLATE
     Dates: start: 2025

REACTIONS (2)
  - Influenza [Unknown]
  - Weight increased [Unknown]

NARRATIVE: CASE EVENT DATE: 20250101
